FAERS Safety Report 18449315 (Version 1)
Quarter: 2020Q4

REPORT INFORMATION
  Report Type: Spontaneous
  Country: CN (occurrence: CN)
  Receive Date: 20201030
  Receipt Date: 20201030
  Transmission Date: 20210114
  Serious: Yes (Other)
  Sender: FDA-Public Use
  Company Number: CN-FRESENIUS KABI-FK202011505

PATIENT
  Age: 69 Year
  Sex: Female
  Weight: 58 kg

DRUGS (10)
  1. INSULIN [Suspect]
     Active Substance: INSULIN NOS
     Indication: NUTRITIONAL SUPPLEMENTATION
     Dosage: 28 IU QD
     Route: 041
     Dates: start: 20201013, end: 20201013
  2. PYRIDOXINE HYDROCHLORIDE/THIAMINE HYDROCHLORIDE/RIBOFLAVIN/NICOTINAMIDE [Suspect]
     Active Substance: NIACINAMIDE\PYRIDOXINE HYDROCHLORIDE\RIBOFLAVIN\THIAMINE HYDROCHLORIDE
     Indication: NUTRITIONAL SUPPLEMENTATION
     Dosage: 1 BOTTLE QD
     Route: 041
     Dates: start: 20201013, end: 20201013
  3. POTASSIUM CHLORIDE. [Concomitant]
     Active Substance: POTASSIUM CHLORIDE
     Indication: NUTRITIONAL SUPPLEMENTATION
     Dosage: 30ML QD
     Route: 041
     Dates: start: 20201013, end: 20201013
  4. GLUCOSE [Concomitant]
     Active Substance: DEXTROSE
     Indication: VEHICLE SOLUTION USE
     Dosage: 200ML QD
     Route: 041
     Dates: start: 20201013, end: 20201013
  5. LIPOVENOES MCT 20% [Suspect]
     Active Substance: EGG PHOSPHOLIPIDS\GLYCERIN\MEDIUM-CHAIN TRIGLYCERIDES\SOYBEAN OIL
     Indication: NUTRITIONAL SUPPLEMENTATION
     Dosage: 250 ML, QD
     Route: 041
     Dates: start: 20201013, end: 20201013
  6. GLUCOSE/SODIUM CHLORIDE [Concomitant]
     Active Substance: DEXTROSE\SODIUM CHLORIDE
     Indication: VEHICLE SOLUTION USE
     Dosage: 500ML QD
     Route: 041
     Dates: start: 20201013, end: 20201013
  7. NOVAMIN 8.5% [Suspect]
     Active Substance: AMINO ACIDS, SOURCE UNSPECIFIED
     Indication: NUTRITIONAL SUPPLEMENTATION
     Dosage: 500ML, QD
     Route: 041
     Dates: start: 20201013, end: 20201013
  8. ADDAMEL N [Suspect]
     Active Substance: CHROMIC CHLORIDE\CUPROUS CHLORIDE\FERRIC CHLORIDE\MANGANESE CHLORIDE\POTASSIUM IODIDE\SODIUM FLUORIDE\SODIUM MOLYBDATE DIHYDRATE\SODIUM SELENITE\ZINC CHLORIDE
     Indication: NUTRITIONAL SUPPLEMENTATION
     Dosage: 10 ML, QD
     Route: 041
     Dates: start: 20201013, end: 20201013
  9. SODIUM CHLORIDE. [Concomitant]
     Active Substance: SODIUM CHLORIDE
     Indication: NUTRITIONAL SUPPLEMENTATION
     Dosage: 60ML QD
     Route: 041
     Dates: start: 20201013, end: 20201013
  10. ERGOCALCIFEROL/RETINOL PALMITATE/PHYTOMENADIONE/VITAMIN E NOS [Suspect]
     Active Substance: VITAMINS
     Indication: NUTRITIONAL SUPPLEMENTATION
     Dosage: 2 BOTTLE QD
     Route: 041
     Dates: start: 20201013, end: 20201013

REACTIONS (6)
  - Cyanosis [Recovered/Resolved]
  - Tachypnoea [Recovered/Resolved]
  - Chest discomfort [Recovered/Resolved]
  - Respiratory rate increased [Recovered/Resolved]
  - Blood pressure increased [Recovered/Resolved]
  - Tachycardia [Recovered/Resolved]

NARRATIVE: CASE EVENT DATE: 20201013
